FAERS Safety Report 18601416 (Version 1)
Quarter: 2020Q4

REPORT INFORMATION
  Report Type: Spontaneous
  Country: US (occurrence: US)
  Receive Date: 20201210
  Receipt Date: 20201210
  Transmission Date: 20210114
  Serious: Yes (Hospitalization, Other)
  Sender: FDA-Public Use
  Company Number: US-JNJFOC-20201205520

PATIENT
  Age: 28 Year
  Sex: Male

DRUGS (1)
  1. LOPERAMIDE HYDROCHLORIDE. [Suspect]
     Active Substance: LOPERAMIDE HYDROCHLORIDE
     Indication: DIARRHOEA
     Route: 065

REACTIONS (6)
  - Anxiety [Unknown]
  - Withdrawal syndrome [Unknown]
  - Agitation [Unknown]
  - Ileus [Recovering/Resolving]
  - Brugada syndrome [Recovering/Resolving]
  - Drug abuse [Unknown]
